FAERS Safety Report 4445051-6 (Version None)
Quarter: 2004Q3

REPORT INFORMATION
  Report Type: 
  Country: None (occurrence: None)
  Receive Date: 20040903
  Receipt Date: 20040819
  Transmission Date: 20050211
  Serious: Yes (Hospitalization)
  Sender: FDA-Public Use
  Company Number: 04P-163-0271240-00

PATIENT
  Age: 42 Year
  Sex: Female
  Weight: 63.05 kg

DRUGS (9)
  1. HUMIRA [Suspect]
     Indication: RHEUMATOID ARTHRITIS
     Dosage: 40 MG, 1 IN 2 WK, SUBCUTANEOUS
     Route: 058
     Dates: start: 20031027, end: 20040205
  2. HUMIRA [Suspect]
     Indication: RHEUMATOID ARTHRITIS
     Dosage: 40 MG, 1 IN 2 WK, SUBCUTANEOUS
     Route: 058
     Dates: start: 20040407, end: 20040623
  3. HYDROXYCHLOROQUINE PHOSPHATE [Concomitant]
  4. ALEXA [Concomitant]
  5. PREDNISONE [Concomitant]
  6. PANTOPRAZOLE [Concomitant]
  7. ASCORBIC ACID [Concomitant]
  8. SULFASALAZINE [Concomitant]
  9. TOPIRMATE [Concomitant]

REACTIONS (3)
  - ANAEMIA [None]
  - SEPSIS [None]
  - STAPHYLOCOCCAL INFECTION [None]
